FAERS Safety Report 6095724-7 (Version None)
Quarter: 2009Q1

REPORT INFORMATION
  Report Type: 
  Country: None (occurrence: None)
  Receive Date: 20090227
  Receipt Date: 20080603
  Transmission Date: 20090719
  Serious: No
  Sender: FDA-Public Use
  Company Number: A0730896A

PATIENT
  Age: 4 Year
  Sex: Male

DRUGS (2)
  1. LAMICTAL [Suspect]
     Dosage: 10MG TWICE PER DAY
     Route: 048
     Dates: start: 20080501
  2. NO CONCURRENT MEDICATION [Concomitant]

REACTIONS (1)
  - MEDICATION ERROR [None]
